FAERS Safety Report 21589553 (Version 2)
Quarter: 2023Q1

REPORT INFORMATION
  Report Type: Report from Study
  Country: US (occurrence: US)
  Receive Date: 20221114
  Receipt Date: 20230128
  Transmission Date: 20230418
  Serious: No
  Sender: FDA-Public Use
  Company Number: US-ABBVIE-22K-163-4465693-00

PATIENT
  Sex: Male
  Weight: 38.555 kg

DRUGS (4)
  1. IMBRUVICA [Suspect]
     Active Substance: IBRUTINIB
     Indication: Chronic lymphocytic leukaemia
     Route: 048
     Dates: start: 201811
  2. CHLORTHALIDONE [Concomitant]
     Active Substance: CHLORTHALIDONE
     Indication: Product used for unknown indication
     Route: 048
     Dates: start: 2019
  3. ALLOPURINOL [Concomitant]
     Active Substance: ALLOPURINOL
     Indication: Product used for unknown indication
     Route: 048
     Dates: start: 2022
  4. LEVOTHYROXINE [Concomitant]
     Active Substance: LEVOTHYROXINE
     Indication: Product used for unknown indication
     Route: 048
     Dates: start: 1980

REACTIONS (7)
  - Unevaluable event [Recovered/Resolved]
  - Cyanosis [Not Recovered/Not Resolved]
  - Skin discolouration [Not Recovered/Not Resolved]
  - Gout [Recovered/Resolved]
  - Rash macular [Not Recovered/Not Resolved]
  - Oedema peripheral [Not Recovered/Not Resolved]
  - Fatigue [Not Recovered/Not Resolved]

NARRATIVE: CASE EVENT DATE: 20190101
